FAERS Safety Report 21729607 (Version 2)
Quarter: 2023Q1

REPORT INFORMATION
  Report Type: Spontaneous
  Country: AU (occurrence: AU)
  Receive Date: 20221214
  Receipt Date: 20230201
  Transmission Date: 20230418
  Serious: Yes (Other)
  Sender: FDA-Public Use
  Company Number: AU-ALXN-A202215387

PATIENT
  Sex: Male

DRUGS (1)
  1. ULTOMIRIS [Suspect]
     Active Substance: RAVULIZUMAB-CWVZ
     Indication: Paroxysmal nocturnal haemoglobinuria
     Dosage: UNK
     Route: 065
     Dates: start: 20220510

REACTIONS (5)
  - Thrombocytopenia [Unknown]
  - Myeloproliferative neoplasm [Unknown]
  - Haemolysis [Unknown]
  - Reticulocyte count decreased [Unknown]
  - Reticulocyte count increased [Unknown]
